FAERS Safety Report 10070075 (Version 2)
Quarter: 2014Q2

REPORT INFORMATION
  Report Type: Spontaneous
  Country: IT (occurrence: None)
  Receive Date: 20140408
  Receipt Date: 20140512
  Transmission Date: 20141212
  Serious: Yes (Other)
  Sender: FDA-Public Use
  Company Number: AUR-APL-2014-04137

PATIENT
  Age: 50 Year
  Sex: Male

DRUGS (1)
  1. AMOXICILLIN [Suspect]
     Indication: PRODUCT USED FOR UNKNOWN INDICATION
     Dosage: (1 GM, TOTAL) ORAL
     Route: 048
     Dates: start: 20131129, end: 20131129

REACTIONS (4)
  - Urticaria [None]
  - Pruritus generalised [None]
  - Laryngeal oedema [None]
  - Dyspnoea [None]
